FAERS Safety Report 11096753 (Version 4)
Quarter: 2015Q2

REPORT INFORMATION
  Report Type: Spontaneous
  Country: FR (occurrence: FR)
  Receive Date: 20150507
  Receipt Date: 20150622
  Transmission Date: 20150821
  Serious: Yes (Life-Threatening, Hospitalization, Other)
  Sender: FDA-Public Use
  Company Number: FR-ASTRAZENECA-2015SE41238

PATIENT
  Age: 388 Month
  Sex: Female

DRUGS (9)
  1. ISOPTIN [Concomitant]
     Active Substance: VERAPAMIL HYDROCHLORIDE
     Dates: start: 201406
  2. PLAVIX [Concomitant]
     Active Substance: CLOPIDOGREL BISULFATE
     Dates: start: 201406
  3. XEROQUEL [Suspect]
     Active Substance: QUETIAPINE FUMARATE
     Indication: BIPOLAR DISORDER
     Route: 048
     Dates: start: 201312
  4. IMPLANON [Concomitant]
     Active Substance: ETONOGESTREL
     Indication: CONTRACEPTION
     Dates: start: 201404, end: 201409
  5. VALIUM [Concomitant]
     Active Substance: DIAZEPAM
  6. DUOPLAVIN [Concomitant]
     Active Substance: ASPIRIN\CLOPIDOGREL
     Dates: start: 201406
  7. CRESTOR [Suspect]
     Active Substance: ROSUVASTATIN CALCIUM
     Route: 048
     Dates: start: 201406
  8. ASPIRIN. [Concomitant]
     Active Substance: ASPIRIN
     Dates: start: 201406
  9. SUBUTEX [Concomitant]
     Active Substance: BUPRENORPHINE HYDROCHLORIDE
     Dates: start: 201406

REACTIONS (13)
  - Nocturia [Recovered/Resolved]
  - Intestinal infarction [Recovered/Resolved]
  - Weight increased [Recovered/Resolved]
  - Somnolence [Unknown]
  - Prinzmetal angina [Recovered/Resolved]
  - Blood pressure decreased [Recovered/Resolved]
  - Weight decreased [Unknown]
  - Acute myocardial infarction [Recovered/Resolved with Sequelae]
  - Arteriospasm coronary [Unknown]
  - Acute coronary syndrome [Recovered/Resolved]
  - Arteriosclerosis [Unknown]
  - Off label use [Unknown]
  - Extrasystoles [Recovered/Resolved]

NARRATIVE: CASE EVENT DATE: 201312
